FAERS Safety Report 18878750 (Version 1)
Quarter: 2021Q1

REPORT INFORMATION
  Report Type: Spontaneous
  Country: US (occurrence: US)
  Receive Date: 20210211
  Receipt Date: 20210211
  Transmission Date: 20210420
  Serious: Yes (Other)
  Sender: FDA-Public Use
  Company Number: None

PATIENT
  Age: 72 Year
  Sex: Female
  Weight: 48.6 kg

DRUGS (12)
  1. COENZYME Q10 [Concomitant]
     Active Substance: DIETARY SUPPLEMENT\UBIDECARENONE
  2. SELEGILINE [Concomitant]
     Active Substance: SELEGILINE
  3. CALCIUM [Concomitant]
     Active Substance: CALCIUM
  4. DHA [Concomitant]
     Active Substance: DIETARY SUPPLEMENT
  5. MAGNESIUM [Concomitant]
     Active Substance: MAGNESIUM
  6. RYTARY [Suspect]
     Active Substance: CARBIDOPA\LEVODOPA
     Indication: DYSKINESIA
     Route: 048
     Dates: start: 20210130, end: 20210202
  7. AMANTADINE. [Concomitant]
     Active Substance: AMANTADINE HYDROCHLORIDE
  8. ISRADIPINE. [Concomitant]
     Active Substance: ISRADIPINE
  9. B6 [Concomitant]
     Active Substance: PYRIDOXINE HYDROCHLORIDE
  10. ALENDRONATE SODIUM. [Concomitant]
     Active Substance: ALENDRONATE SODIUM
  11. GLUTATHIONE [Concomitant]
     Active Substance: GLUTATHIONE
  12. RYTARY [Suspect]
     Active Substance: CARBIDOPA\LEVODOPA
     Indication: DYSKINESIA
     Dosage: ?          QUANTITY:3 CAPSULE(S);?
     Route: 048
     Dates: start: 20210127, end: 20210128

REACTIONS (7)
  - Hyperhidrosis [None]
  - Dyskinesia [None]
  - Asthenia [None]
  - Heart rate increased [None]
  - Confusional state [None]
  - Fall [None]
  - Spinal fracture [None]

NARRATIVE: CASE EVENT DATE: 20210201
